FAERS Safety Report 6629612-1 (Version None)
Quarter: 2010Q1

REPORT INFORMATION
  Report Type: 
  Country: None (occurrence: None)
  Receive Date: 20100311
  Receipt Date: 20100226
  Transmission Date: 20100710
  Serious: No
  Sender: FDA-Public Use
  Company Number: US-ELI_LILLY_AND_COMPANY-US200912004051

PATIENT
  Sex: Female

DRUGS (13)
  1. FORTEO [Suspect]
     Indication: OSTEOPOROSIS
     Dosage: 20 UG, DAILY (1/D)
     Dates: start: 20091001
  2. WARFARIN SODIUM [Concomitant]
  3. MAGNESIUM OXIDE [Concomitant]
  4. METOPROLOL [Concomitant]
  5. GLIMEPIRIDE [Concomitant]
  6. OMEPRAZOLE [Concomitant]
  7. SINGULAIR [Concomitant]
  8. PULMICORT RESPULES [Concomitant]
  9. ALBUTEROL [Concomitant]
  10. VENTOLIN [Concomitant]
  11. MULTI-VITAMIN [Concomitant]
  12. CALTRATE 600 + D [Concomitant]
  13. OXYGEN [Concomitant]

REACTIONS (4)
  - EATING DISORDER [None]
  - MALAISE [None]
  - SPINAL DISORDER [None]
  - WEIGHT DECREASED [None]
